FAERS Safety Report 8876305 (Version 1)
Quarter: 2012Q4

REPORT INFORMATION
  Report Type: 
  Country: US (occurrence: US)
  Receive Date: 20121031
  Receipt Date: 20121031
  Transmission Date: 20130627
  Serious: Yes (Hospitalization, Other)
  Sender: FDA-Public Use
  Company Number: US-JNJFOC-20121010586

PATIENT
  Sex: Female
  Weight: 40.37 kg

DRUGS (14)
  1. DURAGESIC [Suspect]
     Indication: NEUROPATHY PERIPHERAL
     Route: 062
  2. DURAGESIC [Suspect]
     Indication: NEUROPATHY PERIPHERAL
     Route: 062
  3. DURAGESIC [Suspect]
     Indication: NEUROPATHY PERIPHERAL
     Route: 062
     Dates: start: 2004
  4. DURAGESIC [Suspect]
     Indication: NEUROPATHY PERIPHERAL
     Route: 062
     Dates: start: 2009, end: 2009
  5. DURAGESIC [Suspect]
     Indication: NEUROPATHY PERIPHERAL
     Dosage: 2 x 75 ug/hr
     Route: 062
     Dates: start: 2009, end: 2009
  6. DURAGESIC [Suspect]
     Indication: NEUROPATHY PERIPHERAL
     Dosage: 2 x 75 ug/hr
     Route: 062
     Dates: start: 2009, end: 2009
  7. SANDOZ FENTANYL MATRIX TRANSDERMAL SYSTEM [Concomitant]
     Indication: NEUROPATHY PERIPHERAL
     Route: 062
     Dates: start: 201111
  8. DURAGESIC [Concomitant]
     Indication: NEUROPATHY PERIPHERAL
     Route: 062
     Dates: start: 201111
  9. LYRICA [Concomitant]
     Indication: BURNING SENSATION
     Route: 048
  10. LEXAPRO [Concomitant]
     Indication: DEPRESSION
     Route: 048
     Dates: end: 201204
  11. EFFEXOR [Concomitant]
     Indication: DEPRESSION
     Route: 048
     Dates: start: 201204
  12. TPN [Concomitant]
     Indication: MALABSORPTION
     Route: 042
     Dates: start: 2002
  13. LIPIDS [Concomitant]
     Indication: MALABSORPTION
     Route: 042
     Dates: start: 2002
  14. OXYCODONE [Concomitant]
     Indication: PAIN
     Dosage: every 4 hours as needed
     Route: 048

REACTIONS (8)
  - Multi-organ failure [Recovered/Resolved]
  - Hospitalisation [Recovered/Resolved]
  - Weight increased [Not Recovered/Not Resolved]
  - Drug dose omission [Not Recovered/Not Resolved]
  - Incoherent [Recovered/Resolved]
  - Hyperhidrosis [Not Recovered/Not Resolved]
  - Application site vesicles [Not Recovered/Not Resolved]
  - Product quality issue [Unknown]
